FAERS Safety Report 18107208 (Version 1)
Quarter: 2020Q3

REPORT INFORMATION
  Report Type: Spontaneous
  Country: US (occurrence: US)
  Receive Date: 20200804
  Receipt Date: 20200804
  Transmission Date: 20201103
  Serious: Yes (Other)
  Sender: FDA-Public Use
  Company Number: US-ROCHE-2652301

PATIENT
  Sex: Male

DRUGS (1)
  1. LUCENTIS [Suspect]
     Active Substance: RANIBIZUMAB
     Indication: DIABETIC RETINOPATHY
     Dosage: EVERY MONTH ? FEW MONTHS; ONGOING:YES
     Route: 065
     Dates: start: 20160801

REACTIONS (2)
  - Leukaemia [Unknown]
  - Blindness unilateral [Unknown]
